FAERS Safety Report 21765784 (Version 5)
Quarter: 2023Q2

REPORT INFORMATION
  Report Type: Report from Study
  Country: US (occurrence: US)
  Receive Date: 20221222
  Receipt Date: 20230410
  Transmission Date: 20230721
  Serious: No
  Sender: FDA-Public Use
  Company Number: US-002147023-NVSC2022US296248

PATIENT
  Sex: Female

DRUGS (2)
  1. COSENTYX [Suspect]
     Active Substance: SECUKINUMAB
     Indication: Psoriatic arthropathy
     Dosage: 150 MG, QMO
     Route: 058
  2. COSENTYX [Suspect]
     Active Substance: SECUKINUMAB
     Dosage: 150 MG, Q2W, (EVERY 2 WEEKS)
     Route: 058

REACTIONS (5)
  - Arthropathy [Not Recovered/Not Resolved]
  - Pain [Recovering/Resolving]
  - Joint swelling [Unknown]
  - Off label use [Unknown]
  - Therapeutic product effect incomplete [Unknown]
